FAERS Safety Report 7758548-8 (Version None)
Quarter: 2011Q3

REPORT INFORMATION
  Report Type: 
  Country: None (occurrence: None)
  Receive Date: 20110919
  Receipt Date: 20110906
  Transmission Date: 20111222
  Serious: Yes (Other)
  Sender: FDA-Public Use
  Company Number: FR-ELI_LILLY_AND_COMPANY-FR201109001275

PATIENT
  Sex: Female

DRUGS (2)
  1. ZYPREXA [Suspect]
     Dosage: 20 MG, QD
     Route: 048
     Dates: start: 20110704
  2. DEPAKOTE [Concomitant]
     Dosage: 250 MG, TID
     Route: 048
     Dates: start: 20110623, end: 20110707

REACTIONS (1)
  - NEUTROPENIA [None]
